FAERS Safety Report 17572084 (Version 1)
Quarter: 2020Q1

REPORT INFORMATION
  Report Type: Spontaneous
  Country: US (occurrence: US)
  Receive Date: 20200323
  Receipt Date: 20200323
  Transmission Date: 20200409
  Serious: No
  Sender: FDA-Public Use
  Company Number: US-HORIZON-PRO-0081-2020

PATIENT
  Age: 31 Year
  Sex: Male

DRUGS (9)
  1. CLONIDINE HCL [Concomitant]
     Active Substance: CLONIDINE HYDROCHLORIDE
  2. TACROLIMUS. [Concomitant]
     Active Substance: TACROLIMUS
  3. PROCYSBI [Suspect]
     Active Substance: CYSTEAMINE BITARTRATE
     Indication: CYSTINOSIS
     Dosage: 825MG (11 CAPSULES) TWICE DAILY ORALLY
     Route: 048
  4. LISINOPRIL. [Concomitant]
     Active Substance: LISINOPRIL
  5. METOPROLOL SUCCINATE. [Concomitant]
     Active Substance: METOPROLOL SUCCINATE
  6. AMLODIPINE BESYLATE. [Concomitant]
     Active Substance: AMLODIPINE BESYLATE
  7. LEVOTHYROXINE. [Concomitant]
     Active Substance: LEVOTHYROXINE
  8. EVEROLIMUS. [Concomitant]
     Active Substance: EVEROLIMUS
  9. PREDNISONE. [Concomitant]
     Active Substance: PREDNISONE

REACTIONS (4)
  - Fatigue [Unknown]
  - Weight gain poor [Unknown]
  - Dysphagia [Unknown]
  - Diarrhoea [Unknown]
